FAERS Safety Report 19302890 (Version 3)
Quarter: 2025Q2

REPORT INFORMATION
  Report Type: Spontaneous
  Country: US (occurrence: US)
  Receive Date: 20210525
  Receipt Date: 20250526
  Transmission Date: 20250717
  Serious: Yes (Life-Threatening, Hospitalization, Other)
  Sender: ACCORD
  Company Number: US-ACCORD-226273

PATIENT
  Age: 49 Year
  Sex: Male
  Weight: 81.8 kg

DRUGS (12)
  1. FUROSEMIDE [Interacting]
     Active Substance: FUROSEMIDE
     Indication: Product used for unknown indication
  2. ROSUVASTATIN CALCIUM [Interacting]
     Active Substance: ROSUVASTATIN CALCIUM
     Indication: Product used for unknown indication
  3. ONDANSETRON [Interacting]
     Active Substance: ONDANSETRON
     Indication: Vomiting
     Dosage: 4 MG TWICE
  4. DOFETILIDE [Interacting]
     Active Substance: DOFETILIDE
     Indication: Atrial fibrillation
     Dosage: VIAL CONTAINING DOFETILIDE 500 MCG CAPSULES, 1000 MCG TWICE DAILY
  5. FAMOTIDINE [Interacting]
     Active Substance: FAMOTIDINE
     Indication: Vomiting
     Route: 042
  6. IBUPROFEN [Interacting]
     Active Substance: IBUPROFEN
     Indication: Product used for unknown indication
  7. DILTIAZEM [Interacting]
     Active Substance: DILTIAZEM
     Indication: Product used for unknown indication
     Route: 048
  8. FOLIC ACID [Interacting]
     Active Substance: FOLIC ACID
     Indication: Product used for unknown indication
  9. DABIGATRAN [Interacting]
     Active Substance: DABIGATRAN
     Indication: Product used for unknown indication
  10. SENNA [Interacting]
     Active Substance: SENNOSIDES
     Indication: Product used for unknown indication
  11. LORAZEPAM [Interacting]
     Active Substance: LORAZEPAM
     Indication: Alcohol withdrawal syndrome
     Route: 042
  12. AMIODARONE [Concomitant]
     Active Substance: AMIODARONE

REACTIONS (7)
  - Cardiac arrest [Recovered/Resolved]
  - Electrocardiogram QT prolonged [Recovered/Resolved]
  - Hypokalaemia [Recovered/Resolved]
  - Drug interaction [Unknown]
  - Medication error [Unknown]
  - Overdose [Unknown]
  - Condition aggravated [Recovering/Resolving]
